FAERS Safety Report 9785276 (Version 1)
Quarter: 2013Q4

REPORT INFORMATION
  Report Type: Spontaneous
  Country: US (occurrence: None)
  Receive Date: 20131224
  Receipt Date: 20131224
  Transmission Date: 20140711
  Serious: Yes (Other)
  Sender: FDA-Public Use
  Company Number: 2013-US-004695

PATIENT
  Age: 48 Year
  Sex: Male

DRUGS (8)
  1. XYREM (SODIUM OXYBATE) ORAL SOLUTION, 500MG/ML [Suspect]
     Indication: NARCOLEPSY
     Route: 048
     Dates: start: 201208
  2. AMLODIPINE (AMLODIPINE BESILATE) [Concomitant]
  3. ATENOLOL (ATENOLOL) [Concomitant]
  4. WELLBUTRIN (BUPROPION HYDROCHLORIDE) [Concomitant]
  5. PROTONIX (PANTOPRAZOLE SODIUM SESQUIHYDRATE) [Concomitant]
  6. SPIRIVA (TIOTROPIUM BROMIDE) (TIOTROPIUM BROMIDE) [Concomitant]
  7. ALBUTEROL (SALBUTAMOL SULFATE) [Concomitant]
  8. TESTOSTERONE (TESTOSTERONE PROPIONATE) [Concomitant]

REACTIONS (2)
  - Abdominal pain [None]
  - Benign neoplasm of adrenal gland [None]
